FAERS Safety Report 24062658 (Version 1)
Quarter: 2024Q3

REPORT INFORMATION
  Report Type: Spontaneous
  Country: US (occurrence: US)
  Receive Date: 20240708
  Receipt Date: 20240708
  Transmission Date: 20241016
  Serious: No
  Sender: SANDOZ
  Company Number: US-SANDOZ-SDZ2024US063389

PATIENT
  Sex: Female

DRUGS (1)
  1. COMBIPATCH [Suspect]
     Active Substance: ESTRADIOL\NORETHINDRONE ACETATE
     Indication: Hot flush
     Dosage: UNK
     Route: 062
     Dates: start: 202405

REACTIONS (1)
  - Therapeutic response unexpected [Not Recovered/Not Resolved]
